FAERS Safety Report 23154304 (Version 2)
Quarter: 2023Q4

REPORT INFORMATION
  Report Type: Report from Study
  Country: GR (occurrence: GR)
  Receive Date: 20231107
  Receipt Date: 20231116
  Transmission Date: 20240110
  Serious: Yes (Other)
  Sender: FDA-Public Use
  Company Number: GR-BRISTOL-MYERS SQUIBB COMPANY-2023-110669

PATIENT
  Age: 71 Year
  Sex: Male

DRUGS (4)
  1. PEMETREXED [Suspect]
     Active Substance: PEMETREXED
     Indication: Non-small cell lung cancer
     Dosage: 900 MILLIGRAM
     Route: 065
     Dates: start: 20230707
  2. CARBOPLATIN [Suspect]
     Active Substance: CARBOPLATIN
     Indication: Non-small cell lung cancer
     Dosage: 400 MILLIGRAM, Q3W
     Route: 065
     Dates: start: 20230609
  3. IPILIMUMAB [Suspect]
     Active Substance: IPILIMUMAB
     Indication: Non-small cell lung cancer
     Dosage: 1 MG/KG Q6W (EVERY 6 WEEK)
     Route: 042
     Dates: start: 20230609
  4. NIVOLUMAB [Suspect]
     Active Substance: NIVOLUMAB
     Indication: Non-small cell lung cancer
     Dosage: 360 MILLIGRAM, Q3W
     Route: 042
     Dates: start: 20230609

REACTIONS (1)
  - Immune-mediated hyperthyroidism [Recovered/Resolved]

NARRATIVE: CASE EVENT DATE: 20230727
